FAERS Safety Report 24451430 (Version 2)
Quarter: 2024Q4

REPORT INFORMATION
  Report Type: Spontaneous
  Country: JP (occurrence: JP)
  Receive Date: 20241017
  Receipt Date: 20241125
  Transmission Date: 20250115
  Serious: Yes (Other)
  Sender: MERCK
  Company Number: JP-MSD-M2024-41047

PATIENT
  Age: 8 Decade

DRUGS (10)
  1. KEYTRUDA [Suspect]
     Active Substance: PEMBROLIZUMAB
     Indication: Bile duct cancer
     Dosage: 200 MILLIGRAM, Q3W
     Route: 041
     Dates: start: 20240821, end: 20241002
  2. GEMCITABINE HYDROCHLORIDE [Suspect]
     Active Substance: GEMCITABINE HYDROCHLORIDE
     Dosage: 1000 MILLIGRAM/SQ. METER, QD (2COURSE 80%, 3 COURSE 60%, DAY8 SKIP)
     Route: 041
     Dates: start: 20240821, end: 20240827
  3. GEMCITABINE HYDROCHLORIDE [Suspect]
     Active Substance: GEMCITABINE HYDROCHLORIDE
     Dosage: 800 MILLIGRAM/SQ. METER, QD
     Route: 041
     Dates: start: 20240828, end: 202409
  4. GEMCITABINE HYDROCHLORIDE [Suspect]
     Active Substance: GEMCITABINE HYDROCHLORIDE
     Dosage: 800 MILLIGRAM/SQ. METER, QD
     Route: 041
     Dates: start: 202409, end: 20241001
  5. GEMCITABINE HYDROCHLORIDE [Suspect]
     Active Substance: GEMCITABINE HYDROCHLORIDE
     Dosage: 600 MILLIGRAM/SQ. METER, QD
     Route: 041
     Dates: start: 20241002, end: 20241008
  6. CISPLATIN [Concomitant]
     Active Substance: CISPLATIN
     Dosage: 25 MILLIGRAM/SQ. METER, QD
     Route: 041
     Dates: start: 20240821
  7. AMLODIPINE BESYLATE [Concomitant]
     Active Substance: AMLODIPINE BESYLATE
     Dosage: UNK
     Route: 048
  8. CARDENALIN [Concomitant]
     Active Substance: DOXAZOSIN MESYLATE
     Dosage: UNK
     Route: 048
  9. ATORVASTATIN CALCIUM TRIHYDRATE [Concomitant]
     Active Substance: ATORVASTATIN CALCIUM TRIHYDRATE
     Route: 048
  10. ELOBIXIBAT [Concomitant]
     Active Substance: ELOBIXIBAT
     Dosage: UNK
     Route: 048

REACTIONS (2)
  - Leukopenia [Recovering/Resolving]
  - Neutrophil count decreased [Recovering/Resolving]

NARRATIVE: CASE EVENT DATE: 20240828
